FAERS Safety Report 9536791 (Version 3)
Quarter: 2013Q4

REPORT INFORMATION
  Report Type: Spontaneous
  Country: US (occurrence: US)
  Receive Date: 20130919
  Receipt Date: 20131218
  Transmission Date: 20140711
  Serious: No
  Sender: FDA-Public Use
  Company Number: US-009507513-1309USA008282

PATIENT
  Age: 96 Year
  Sex: Female

DRUGS (3)
  1. MIRALAX [Suspect]
     Indication: PRODUCT USED FOR UNKNOWN INDICATION
     Dosage: 1 TBSP, BID
     Route: 048
  2. MIRALAX [Suspect]
     Dosage: 1 TBSP, BID
     Route: 048
  3. MIRALAX [Suspect]
     Dosage: 1 TBSP, BID
     Route: 048

REACTIONS (2)
  - Overdose [Unknown]
  - Product odour abnormal [Unknown]
